FAERS Safety Report 16775665 (Version 1)
Quarter: 2019Q4

REPORT INFORMATION
  Report Type: Spontaneous
  Country: US (occurrence: US)
  Receive Date: 20190905
  Receipt Date: 20190905
  Transmission Date: 20200122
  Serious: No
  Sender: FDA-Public Use
  Company Number: None

PATIENT
  Age: 35 Year
  Sex: Female

DRUGS (2)
  1. ENDOMETRIN [Suspect]
     Active Substance: PROGESTERONE
     Indication: INFERTILITY
     Route: 067
     Dates: start: 20190802
  2. ENDOMETRIN [Concomitant]
     Active Substance: PROGESTERONE
     Dates: start: 20190802

REACTIONS (1)
  - Skin irritation [None]

NARRATIVE: CASE EVENT DATE: 20190802
